FAERS Safety Report 5779760-3 (Version None)
Quarter: 2008Q2

REPORT INFORMATION
  Report Type: 
  Country: None (occurrence: None)
  Receive Date: 20080617
  Receipt Date: 20080602
  Transmission Date: 20081010
  Serious: Yes (Life-Threatening, Hospitalization)
  Sender: FDA-Public Use
  Company Number: 2008AL006427

PATIENT
  Age: 83 Year
  Sex: Female

DRUGS (2)
  1. DIGOXIN TABLETS, UPS 0.125 MG (AMIDE) (DIGOXIN TABLETS, USP 0.125 MG ( [Suspect]
     Dosage: 62.5 MG;QD
     Dates: end: 20080414
  2. SPIRONOLACTONE [Suspect]
     Indication: OEDEMA
     Dosage: 25 MG;QD;
     Dates: start: 20080325, end: 20080414

REACTIONS (5)
  - ATRIOVENTRICULAR BLOCK COMPLETE [None]
  - BLOOD POTASSIUM INCREASED [None]
  - BLOOD PRESSURE DECREASED [None]
  - FALL [None]
  - RENAL FAILURE ACUTE [None]
